FAERS Safety Report 11056586 (Version 1)
Quarter: 2015Q2

REPORT INFORMATION
  Report Type: Spontaneous
  Country: US (occurrence: None)
  Receive Date: 20150420
  Receipt Date: 20150420
  Transmission Date: 20150821
  Serious: Yes (Other)
  Sender: FDA-Public Use
  Company Number: M-15-006

PATIENT

DRUGS (1)
  1. TERBUTALINE [Suspect]
     Active Substance: TERBUTALINE

REACTIONS (1)
  - Drug ineffective [None]
